FAERS Safety Report 4536155-8 (Version None)
Quarter: 2004Q4

REPORT INFORMATION
  Report Type: 
  Country: None (occurrence: None)
  Receive Date: 20041220
  Receipt Date: 20041207
  Transmission Date: 20050328
  Serious: Yes (Hospitalization)
  Sender: FDA-Public Use
  Company Number: 2004106568

PATIENT
  Age: 49 Year
  Sex: Female

DRUGS (9)
  1. LIPITOR [Suspect]
     Indication: BLOOD CHOLESTEROL INCREASED
     Dosage: 40 MG (40 MG, DAILY), ORAL
     Route: 048
     Dates: start: 20041001
  2. METOPROLOL TARTRATE [Concomitant]
  3. BUPROPION HYDROCHLORIDE [Concomitant]
  4. ASPIRIN [Concomitant]
  5. NITROGLYCERIN [Concomitant]
  6. LINSEED OIL (LINSEED OIL) [Concomitant]
  7. CALCIUM/MINERALS NOS (CALCIUM, MINERALS NOS) [Concomitant]
  8. FISH OIL (FISH OIL) [Concomitant]
  9. CYANOCOBALAMIN (CYANOCOBALAMIN) [Concomitant]

REACTIONS (2)
  - HIGH DENSITY LIPOPROTEIN DECREASED [None]
  - OESOPHAGEAL SPASM [None]
